FAERS Safety Report 8710905 (Version 2)
Quarter: 2012Q4

REPORT INFORMATION
  Report Type: 
  Country: US (occurrence: US)
  Receive Date: 20120807
  Receipt Date: 20120914
  Transmission Date: 20130627
  Serious: Yes (Hospitalization, Other)
  Sender: FDA-Public Use
  Company Number: PHEH2012US015372

PATIENT
  Sex: Male

DRUGS (1)
  1. AFINITOR [Suspect]
     Indication: MALIGNANT URINARY TRACT NEOPLASM
     Dosage: 5 mg, daily
     Route: 048
     Dates: start: 20120309

REACTIONS (3)
  - Renal disorder [Unknown]
  - Prostatic obstruction [Unknown]
  - Dehydration [Unknown]
